FAERS Safety Report 8915060 (Version 1)
Quarter: 2012Q4

REPORT INFORMATION
  Report Type: 
  Country: US (occurrence: US)
  Receive Date: 20121119
  Receipt Date: 20121119
  Transmission Date: 20130627
  Serious: No
  Sender: FDA-Public Use
  Company Number: US-BAYER-2012-114297

PATIENT
  Age: 52 Year
  Sex: Female

DRUGS (10)
  1. BETASERON [Suspect]
     Dosage: UNK
  2. NEURONTIN [Concomitant]
  3. MULTITABS [Concomitant]
  4. CALCIUM +VIT D [Concomitant]
  5. FISH OIL [Concomitant]
  6. VITAMIN D3 [Concomitant]
  7. ACETYL L-CARNITINE [Concomitant]
  8. BIOTIN [Concomitant]
  9. RASPBERRY SYP [Concomitant]
  10. IBUPROFEN [Concomitant]

REACTIONS (3)
  - Injection site erythema [Unknown]
  - Injection site bruising [Unknown]
  - Influenza like illness [Unknown]
